FAERS Safety Report 15393982 (Version 2)
Quarter: 2018Q4

REPORT INFORMATION
  Report Type: Spontaneous
  Country: US (occurrence: US)
  Receive Date: 20180917
  Receipt Date: 20181109
  Transmission Date: 20190204
  Serious: No
  Sender: FDA-Public Use
  Company Number: US-LEO PHARMA-313386

PATIENT
  Sex: Male

DRUGS (1)
  1. PICATO [Suspect]
     Active Substance: INGENOL MEBUTATE
     Indication: ACTINIC KERATOSIS
     Route: 061
     Dates: start: 20180905, end: 20180907

REACTIONS (5)
  - Eye irritation [Recovered/Resolved]
  - Product storage error [Unknown]
  - Application site discolouration [Recovered/Resolved]
  - Skin discolouration [Recovered/Resolved]
  - Eye swelling [Recovered/Resolved]
